FAERS Safety Report 8506003-X (Version None)
Quarter: 2012Q3

REPORT INFORMATION
  Report Type: 
  Country: None (occurrence: None)
  Receive Date: 20120712
  Receipt Date: 20120629
  Transmission Date: 20120928
  Serious: Yes (Other)
  Sender: FDA-Public Use
  Company Number: PL-GLAXOSMITHKLINE-B0814114A

PATIENT
  Age: 50 Year
  Sex: Female

DRUGS (2)
  1. CAPECITABINE [Concomitant]
     Indication: BREAST CANCER
     Route: 065
     Dates: start: 20110801
  2. LAPATINIB [Suspect]
     Indication: BREAST CANCER
     Route: 065
     Dates: start: 20110801

REACTIONS (10)
  - SKIN TOXICITY [None]
  - SKIN EXFOLIATION [None]
  - DERMATITIS EXFOLIATIVE [None]
  - PRURITUS [None]
  - PAIN OF SKIN [None]
  - BLISTER [None]
  - PYREXIA [None]
  - ERYTHEMA [None]
  - RASH PAPULAR [None]
  - ALOPECIA AREATA [None]
